FAERS Safety Report 8069848-9 (Version None)
Quarter: 2012Q1

REPORT INFORMATION
  Report Type: 
  Country: None (occurrence: None)
  Receive Date: 20120125
  Receipt Date: 20120119
  Transmission Date: 20120608
  Serious: No
  Sender: FDA-Public Use
  Company Number: US-PFIZER INC-2012016045

PATIENT
  Sex: Female
  Weight: 56.7 kg

DRUGS (5)
  1. AMLODIPINE [Concomitant]
     Indication: HYPERTENSION
     Dosage: UNK
  2. KLOR-CON [Concomitant]
     Indication: BLOOD COUNT ABNORMAL
     Dosage: UNK
  3. LYRICA [Suspect]
     Indication: PAIN
     Dosage: 25 MG, 3X/DAY
     Route: 048
     Dates: start: 20111001
  4. OMEPRAZOLE [Concomitant]
     Indication: DYSPEPSIA
     Dosage: UNK
  5. ATENOLOL [Concomitant]
     Indication: HYPERTENSION
     Dosage: UNK

REACTIONS (3)
  - MOOD ALTERED [None]
  - FEAR [None]
  - NERVOUSNESS [None]
